FAERS Safety Report 20565624 (Version 9)
Quarter: 2022Q4

REPORT INFORMATION
  Report Type: Spontaneous
  Country: US (occurrence: US)
  Receive Date: 20220308
  Receipt Date: 20221213
  Transmission Date: 20230112
  Serious: Yes (Other)
  Sender: FDA-Public Use
  Company Number: US-GLAXOSMITHKLINE-US2022AMR038270

PATIENT

DRUGS (3)
  1. ZEJULA [Suspect]
     Active Substance: NIRAPARIB
     Indication: Ovarian cancer
     Dosage: 300 MG, QD
     Dates: end: 20220318
  2. ZEJULA [Suspect]
     Active Substance: NIRAPARIB
     Dosage: 200 MG, QD
     Dates: start: 202204
  3. GABAPENTIN [Suspect]
     Active Substance: GABAPENTIN
     Indication: Product used for unknown indication
     Dosage: UNK

REACTIONS (23)
  - Neuropathy peripheral [Recovering/Resolving]
  - Nausea [Not Recovered/Not Resolved]
  - Gingival bleeding [Unknown]
  - Pain in extremity [Not Recovered/Not Resolved]
  - Thyroid operation [Unknown]
  - Cognitive disorder [Unknown]
  - Abdominal discomfort [Unknown]
  - Adverse drug reaction [Unknown]
  - Burning sensation [Unknown]
  - Dysstasia [Unknown]
  - Gait disturbance [Unknown]
  - Platelet count decreased [Not Recovered/Not Resolved]
  - Arthralgia [Unknown]
  - Paraesthesia oral [Unknown]
  - Weight increased [Unknown]
  - Full blood count decreased [Unknown]
  - Abdominal distension [Unknown]
  - Abdominal pain [Unknown]
  - Coronavirus test positive [Recovered/Resolved]
  - Pruritus [Recovered/Resolved]
  - Coronavirus infection [Unknown]
  - Carbohydrate antigen 125 increased [Unknown]
  - Product dose omission issue [Unknown]
